FAERS Safety Report 13728070 (Version 4)
Quarter: 2018Q1

REPORT INFORMATION
  Report Type: Spontaneous
  Country: US (occurrence: US)
  Receive Date: 20170707
  Receipt Date: 20180119
  Transmission Date: 20180508
  Serious: No
  Sender: FDA-Public Use
  Company Number: US-PFIZER INC-2017293896

PATIENT
  Age: 81 Year
  Sex: Female
  Weight: 55 kg

DRUGS (8)
  1. ROSUVASTATIN. [Concomitant]
     Active Substance: ROSUVASTATIN
     Indication: BLOOD CHOLESTEROL
     Dosage: 10 MG, 1X/DAY (ONCE A DAY FOR 5 DAYS A WEEK)
  2. GABAPENTIN. [Concomitant]
     Active Substance: GABAPENTIN
     Indication: NEURALGIA
     Dosage: 3 DF, DAILY (3 CAPSULES DAILY IN THE EVENING)
  3. TIMOLOL. [Concomitant]
     Active Substance: TIMOLOL
     Indication: GLAUCOMA
     Dosage: 2 GTT, 1X/DAY (ONE DROP ONCE A DAY IN BOTH EYES)
     Route: 047
  4. XALATAN [Concomitant]
     Active Substance: LATANOPROST
     Indication: GLAUCOMA
     Dosage: 2 GTT, 1X/DAY (ONE DROP ONCE A DAY IN BOTH EYES)
     Route: 047
  5. IBRANCE [Suspect]
     Active Substance: PALBOCICLIB
     Indication: BREAST CANCER FEMALE
     Dosage: 125 MG, CYCLIC (21 DAYS ON AND 7 DAYS OFF)
     Route: 048
     Dates: start: 2016
  6. ALPHAGAN P [Concomitant]
     Active Substance: BRIMONIDINE TARTRATE
     Indication: GLAUCOMA
     Dosage: 2 GTT, 2X/DAY (ONE DROP TWICE DAILY IN BOTH EYES)
     Route: 047
  7. METOPROLOL. [Concomitant]
     Active Substance: METOPROLOL
     Indication: HEART RATE IRREGULAR
     Dosage: 25 MG, 1X/DAY
  8. FASLODEX [Concomitant]
     Active Substance: FULVESTRANT
     Dosage: UNK (INJECTION EVERY 4 WEEKS)

REACTIONS (2)
  - White blood cell count decreased [Unknown]
  - Alopecia [Not Recovered/Not Resolved]
